FAERS Safety Report 25012226 (Version 2)
Quarter: 2025Q1

REPORT INFORMATION
  Report Type: Spontaneous
  Country: US (occurrence: US)
  Receive Date: 20250226
  Receipt Date: 20250303
  Transmission Date: 20250409
  Serious: No
  Sender: AMGEN
  Company Number: US-AMGEN-USASP2025037049

PATIENT
  Sex: Male

DRUGS (3)
  1. KRYSTEXXA [Suspect]
     Active Substance: PEGLOTICASE
     Indication: Product used for unknown indication
     Route: 040
  2. KRYSTEXXA [Suspect]
     Active Substance: PEGLOTICASE
     Route: 040
     Dates: end: 20250221
  3. METHOTREXATE [Suspect]
     Active Substance: METHOTREXATE
     Indication: Product used for unknown indication
     Dosage: 10 MILLIGRAM, QWK, 10MG ONCE A WEEK AND SHOULD HAVE INCREASED 2 WEEKS AGO TO 15MG
     Route: 065

REACTIONS (1)
  - Rash [Unknown]
